FAERS Safety Report 17289919 (Version 1)
Quarter: 2020Q1

REPORT INFORMATION
  Report Type: Report from Study
  Country: IT (occurrence: IT)
  Receive Date: 20200120
  Receipt Date: 20200120
  Transmission Date: 20200409
  Serious: Yes (Other)
  Sender: FDA-Public Use
  Company Number: IT-MYLANLABS-2020M1004772

PATIENT
  Age: 89 Year
  Sex: Female

DRUGS (6)
  1. QUETIAPINE. [Suspect]
     Active Substance: QUETIAPINE
     Indication: AGITATION
     Dosage: 100 MILLIGRAM, TOTAL
     Route: 048
     Dates: start: 20190902, end: 20190903
  2. TAVOR (LORAZEPAM) [Suspect]
     Active Substance: LORAZEPAM
     Indication: SEDATION
     Dosage: 1 DOSAGE FORM, QD
     Route: 048
     Dates: start: 20190902, end: 20190903
  3. AMLODIPINE [Suspect]
     Active Substance: AMLODIPINE BESYLATE
     Indication: HYPERTENSION
     Dosage: 5 MILLIGRAM, QD
     Route: 048
  4. TALOFEN [Suspect]
     Active Substance: PROMAZINE HYDROCHLORIDE
     Indication: SEDATION
     Dosage: 5 GTT DROPS, TOTAL
     Route: 048
     Dates: start: 20190902, end: 20190903
  5. HALDOL [Suspect]
     Active Substance: HALOPERIDOL
     Indication: SEDATION
     Dosage: 10 GTT DROPS, TOTAL
     Route: 048
     Dates: start: 20190902, end: 20190903
  6. LASIX [Concomitant]
     Active Substance: FUROSEMIDE
     Dosage: 1.5 DOSAGE FORM
     Route: 048

REACTIONS (4)
  - Oedema peripheral [Recovering/Resolving]
  - Sedation [Recovering/Resolving]
  - Vasculitis [Recovering/Resolving]
  - Overdose [Recovering/Resolving]

NARRATIVE: CASE EVENT DATE: 20190903
